FAERS Safety Report 9614488 (Version 1)
Quarter: 2013Q4

REPORT INFORMATION
  Report Type: Spontaneous
  Country: US (occurrence: US)
  Receive Date: 20131011
  Receipt Date: 20131011
  Transmission Date: 20140711
  Serious: Yes (Hospitalization)
  Sender: FDA-Public Use
  Company Number: US-PFIZER INC-2013291069

PATIENT
  Age: 60 Year
  Sex: Female
  Weight: 44.4 kg

DRUGS (3)
  1. CHANTIX [Suspect]
     Indication: SMOKING CESSATION THERAPY
     Dosage: 0.5 MG, 1X/DAY
     Route: 048
     Dates: start: 20130927, end: 201309
  2. CHANTIX [Suspect]
     Dosage: 0.5 MG, 2X/DAY
     Route: 048
     Dates: start: 201309, end: 20131001
  3. PREDNISONE [Concomitant]
     Indication: HERPES ZOSTER
     Dosage: UNK

REACTIONS (1)
  - Herpes zoster [Unknown]
